FAERS Safety Report 12357828 (Version 1)
Quarter: 2016Q2

REPORT INFORMATION
  Report Type: Report from Study
  Country: US (occurrence: US)
  Receive Date: 20160512
  Receipt Date: 20160512
  Transmission Date: 20160815
  Serious: No
  Sender: FDA-Public Use
  Company Number: PHHY2016US065007

PATIENT
  Age: 51 Year
  Sex: Male

DRUGS (9)
  1. CLONIDINE. [Suspect]
     Active Substance: CLONIDINE
     Dosage: 14.100 MG, QD (500 MCG/ML)
     Route: 037
     Dates: start: 20151228
  2. FENTANYL. [Suspect]
     Active Substance: FENTANYL
     Indication: PRODUCT USED FOR UNKNOWN INDICATION
     Dosage: 187.16 UG, QD (300 MCG/ML)
     Route: 037
     Dates: start: 20151112, end: 20151228
  3. BACLOFEN. [Suspect]
     Active Substance: BACLOFEN
     Indication: PRODUCT USED FOR UNKNOWN INDICATION
     Dosage: 249.54 UG, QD (400 MCG/ML)
     Route: 037
     Dates: start: 20151112, end: 20151228
  4. BACLOFEN. [Suspect]
     Active Substance: BACLOFEN
     Dosage: 225.61 UG, QD (400 MCG/ML)
     Route: 037
     Dates: start: 20151228
  5. BUPIVACAINE. [Suspect]
     Active Substance: BUPIVACAINE
     Dosage: 14.100 MG, QD
     Route: 037
     Dates: start: 20151228
  6. BUPIVACAINE. [Suspect]
     Active Substance: BUPIVACAINE
     Indication: PRODUCT USED FOR UNKNOWN INDICATION
     Dosage: 15.597 MG, QD
     Route: 037
     Dates: start: 20151112, end: 20151228
  7. CLONIDINE. [Suspect]
     Active Substance: CLONIDINE
     Indication: PRODUCT USED FOR UNKNOWN INDICATION
     Dosage: 249.54 UG, QD (400 MCG/ML)
     Route: 037
     Dates: start: 20151112, end: 20151228
  8. CLONIDINE. [Suspect]
     Active Substance: CLONIDINE
     Dosage: 282.01 UG, QD (500 MCG/ML)
     Route: 037
     Dates: start: 20151228
  9. FENTANYL. [Suspect]
     Active Substance: FENTANYL
     Dosage: 225.61 UG, QD (400 MCG/ML)
     Route: 037
     Dates: start: 20151228

REACTIONS (2)
  - Pain [Recovered/Resolved]
  - Therapeutic response decreased [Recovered/Resolved]

NARRATIVE: CASE EVENT DATE: 20151228
